FAERS Safety Report 8581171-2 (Version None)
Quarter: 2012Q3

REPORT INFORMATION
  Report Type: 
  Country: None (occurrence: None)
  Receive Date: 20120809
  Receipt Date: 20120726
  Transmission Date: 20120928
  Serious: No
  Sender: FDA-Public Use
  Company Number: US-JNJFOC-20120714764

PATIENT
  Sex: Female
  Weight: 48.54 kg

DRUGS (5)
  1. THYROID TAB [Concomitant]
     Indication: HYPOTHYROIDISM
     Route: 048
  2. FENTANYL-100 [Suspect]
     Indication: CANCER PAIN
     Route: 062
     Dates: start: 20120725
  3. COZAAR [Concomitant]
     Indication: HYPERTENSION
     Route: 048
  4. ALLEGRA [Concomitant]
     Indication: SEASONAL ALLERGY
     Route: 048
  5. NORCO [Concomitant]
     Indication: PAIN
     Dosage: 10/326 MG
     Route: 048

REACTIONS (3)
  - VISUAL IMPAIRMENT [None]
  - ABNORMAL DREAMS [None]
  - WRONG TECHNIQUE IN DRUG USAGE PROCESS [None]
